FAERS Safety Report 9207869 (Version 2)
Quarter: 2013Q3

REPORT INFORMATION
  Report Type: Report from Study
  Country: JP (occurrence: JP)
  Receive Date: 20130403
  Receipt Date: 20130903
  Transmission Date: 20140515
  Serious: Yes (Hospitalization)
  Sender: FDA-Public Use
  Company Number: JP-GLAXOSMITHKLINE-B0878925A

PATIENT
  Age: 12 Year
  Sex: Female
  Weight: 40 kg

DRUGS (49)
  1. ARRANON [Suspect]
     Indication: PRECURSOR T-LYMPHOBLASTIC LYMPHOMA/LEUKAEMIA
     Dosage: 640MGM2 PER DAY
     Route: 042
     Dates: start: 20121105, end: 20121109
  2. ARRANON [Suspect]
     Indication: PRECURSOR T-LYMPHOBLASTIC LYMPHOMA/LEUKAEMIA
     Dosage: 650MGM2 PER DAY
     Route: 042
     Dates: start: 20130131, end: 20130204
  3. ARRANON [Suspect]
     Indication: PRECURSOR T-LYMPHOBLASTIC LYMPHOMA/LEUKAEMIA
     Dosage: 650MGM2 PER DAY
     Route: 042
     Dates: start: 20130805, end: 20130809
  4. CYLOCIDE [Suspect]
     Indication: NEOPLASM MALIGNANT
     Route: 042
     Dates: start: 20121112, end: 20121122
  5. CYLOCIDE [Suspect]
     Indication: NEOPLASM MALIGNANT
     Route: 042
     Dates: start: 20121210, end: 20121220
  6. CYLOCIDE [Suspect]
     Indication: NEOPLASM MALIGNANT
     Route: 042
     Dates: start: 20130107, end: 20130117
  7. CYLOCIDE [Suspect]
     Indication: NEOPLASM MALIGNANT
     Route: 042
     Dates: start: 20130207, end: 20130217
  8. LEUNASE [Suspect]
     Indication: NEOPLASM MALIGNANT
     Route: 042
     Dates: start: 20121112, end: 20121122
  9. LEUNASE [Suspect]
     Indication: NEOPLASM MALIGNANT
     Route: 042
     Dates: start: 20121210, end: 20121220
  10. LEUNASE [Suspect]
     Indication: NEOPLASM MALIGNANT
     Route: 042
     Dates: start: 20130107, end: 20130117
  11. LEUNASE [Suspect]
     Indication: NEOPLASM MALIGNANT
     Route: 042
     Dates: start: 20130207, end: 20130217
  12. ETOPOSIDE [Suspect]
     Indication: NEOPLASM MALIGNANT
     Route: 042
     Dates: start: 20121112, end: 20121122
  13. ETOPOSIDE [Suspect]
     Indication: NEOPLASM MALIGNANT
     Route: 042
     Dates: start: 20130207, end: 20130217
  14. METHOTREXATE [Suspect]
     Indication: NEOPLASM MALIGNANT
     Route: 042
     Dates: start: 20121210, end: 20121220
  15. METHOTREXATE [Suspect]
     Indication: NEOPLASM MALIGNANT
     Route: 042
     Dates: start: 20130107, end: 20130117
  16. SENNOSIDE [Suspect]
     Route: 048
     Dates: start: 20121105, end: 20121105
  17. MAGLAX [Suspect]
     Route: 048
     Dates: start: 20121105, end: 20121209
  18. NOVO HEPARIN [Concomitant]
     Dates: start: 20121101, end: 20121203
  19. NEO-MINOPHAGEN-C [Concomitant]
     Route: 042
     Dates: start: 20121031, end: 20121207
  20. SAXIZON [Concomitant]
     Dates: start: 20121117, end: 20121120
  21. SAXIZON [Concomitant]
     Dates: start: 20121201, end: 20121204
  22. POLARAMINE [Concomitant]
     Dates: start: 20121117, end: 20121120
  23. PIPERACILLIN [Concomitant]
     Dates: start: 20121120, end: 20121126
  24. CEFEPIME DIHYDROCHLORIDE HYDRATE [Concomitant]
     Dates: start: 20121126, end: 20121129
  25. NEUTROGIN [Concomitant]
     Route: 042
     Dates: start: 20121127, end: 20121203
  26. MEROPEN [Concomitant]
     Route: 042
     Dates: start: 20121129, end: 20121207
  27. SANGLOPOR [Concomitant]
     Route: 042
     Dates: start: 20121128, end: 20121129
  28. FUNGUARD [Concomitant]
     Route: 042
     Dates: start: 20121126, end: 20121204
  29. FUROSEMIDE [Concomitant]
     Dates: start: 20121204, end: 20121205
  30. BIOFERMIN R [Concomitant]
     Route: 048
     Dates: start: 20121105, end: 20121209
  31. BAKTAR [Concomitant]
     Route: 048
     Dates: start: 20121105, end: 20121209
  32. GASTER D [Concomitant]
     Route: 048
     Dates: start: 20121105, end: 20121209
  33. DOGMATYL [Concomitant]
     Route: 048
     Dates: start: 20121105, end: 20121209
  34. FLUMETHOLON [Concomitant]
     Route: 031
     Dates: start: 20121111, end: 20121209
  35. CLARITIN [Concomitant]
     Route: 048
     Dates: start: 20121113, end: 20121209
  36. DIFLUCAN [Concomitant]
     Route: 048
     Dates: start: 20121120, end: 20121206
  37. POLYMIXIN B SULFATE [Concomitant]
     Route: 048
     Dates: start: 20121120, end: 20121206
  38. SOLDEM 3A [Concomitant]
     Indication: PROPHYLAXIS
     Route: 042
     Dates: start: 20121031, end: 20121207
  39. DEXAMETHASONE [Concomitant]
     Indication: NEOPLASM MALIGNANT
     Route: 065
     Dates: start: 20121112, end: 20121122
  40. DEXAMETHASONE [Concomitant]
     Indication: NEOPLASM MALIGNANT
     Route: 065
     Dates: start: 20121210, end: 20121220
  41. DEXAMETHASONE [Concomitant]
     Indication: NEOPLASM MALIGNANT
     Route: 065
     Dates: start: 20130107, end: 20130117
  42. DEXAMETHASONE [Concomitant]
     Indication: NEOPLASM MALIGNANT
     Route: 065
     Dates: start: 20130207, end: 20130217
  43. VINDESINE SULFATE [Concomitant]
     Indication: NEOPLASM MALIGNANT
     Route: 042
     Dates: start: 20121210, end: 20121220
  44. LEUCOVORIN [Concomitant]
     Indication: NEOPLASM MALIGNANT
     Route: 065
     Dates: start: 20121210, end: 20121220
  45. LEUCOVORIN [Concomitant]
     Indication: NEOPLASM MALIGNANT
     Route: 065
     Dates: start: 20130107, end: 20130117
  46. DAUNORUBICIN HYDROCHLORIDE [Concomitant]
     Indication: NEOPLASM MALIGNANT
     Route: 042
     Dates: start: 20121210, end: 20121220
  47. IFOSFAMIDE [Concomitant]
     Indication: NEOPLASM MALIGNANT
     Route: 042
     Dates: start: 20121210, end: 20121220
  48. VINCRISTINE SULFATE [Concomitant]
     Indication: NEOPLASM MALIGNANT
     Route: 042
     Dates: start: 20130107, end: 20130117
  49. CYCLOPHOSPHAMIDE HYDRATE [Concomitant]
     Indication: NEOPLASM MALIGNANT
     Route: 065
     Dates: start: 20130107, end: 20130117

REACTIONS (11)
  - Neutropenia [Recovered/Resolved]
  - Platelet count decreased [Recovered/Resolved]
  - Anaemia [Recovered/Resolved]
  - Febrile neutropenia [Recovered/Resolved]
  - Diarrhoea [Recovered/Resolved]
  - Headache [Recovered/Resolved]
  - Nausea [Recovered/Resolved]
  - Hyperbilirubinaemia [Recovered/Resolved]
  - Decreased appetite [Recovered/Resolved]
  - Renal failure acute [Recovered/Resolved]
  - Gastric mucosal lesion [Recovered/Resolved]
